FAERS Safety Report 9759027 (Version 4)
Quarter: 2015Q2

REPORT INFORMATION
  Report Type: Spontaneous
  Country: US (occurrence: US)
  Receive Date: 20131216
  Receipt Date: 20150518
  Transmission Date: 20150821
  Serious: Yes (Life-Threatening, Congenital Anomaly, Other)
  Sender: FDA-Public Use
  Company Number: US-ELI_LILLY_AND_COMPANY-US201312003265

PATIENT

DRUGS (1)
  1. PROZAC [Suspect]
     Active Substance: FLUOXETINE HYDROCHLORIDE
     Indication: PRODUCT USED FOR UNKNOWN INDICATION
     Dosage: 20 MG, QD
     Route: 064

REACTIONS (9)
  - Hypoplastic left heart syndrome [Unknown]
  - Double outlet right ventricle [Unknown]
  - Umbilical cord around neck [Unknown]
  - Ventricular septal defect [Unknown]
  - Atrial septal defect [Unknown]
  - Shoulder dystocia [Unknown]
  - Foetal exposure timing unspecified [Unknown]
  - Transposition of the great vessels [Unknown]
  - Coarctation of the aorta [Unknown]
